FAERS Safety Report 6354585-9 (Version None)
Quarter: 2009Q3

REPORT INFORMATION
  Report Type: 
  Country: None (occurrence: None)
  Receive Date: 20090914
  Receipt Date: 20090908
  Transmission Date: 20100115
  Serious: No
  Sender: FDA-Public Use
  Company Number: US-JNJFOC-20090805108

PATIENT
  Sex: Male
  Weight: 76.66 kg

DRUGS (9)
  1. FENTANYL TRANSDERMAL SYSTEM [Suspect]
     Route: 062
  2. FENTANYL TRANSDERMAL SYSTEM [Suspect]
     Indication: MIGRAINE
     Route: 062
  3. NEXIUM [Concomitant]
     Indication: DYSPEPSIA
     Route: 048
  4. ALLEGRA [Concomitant]
     Indication: MULTIPLE ALLERGIES
     Route: 048
  5. SINGULAIR [Concomitant]
     Indication: CHRONIC OBSTRUCTIVE PULMONARY DISEASE
     Route: 048
  6. REQUIP [Concomitant]
     Indication: RESTLESS LEGS SYNDROME
     Dosage: 1 AT NIGHT
     Route: 048
  7. SYNTHROID [Concomitant]
     Indication: HYPOTHYROIDISM
     Dosage: 1 AT NIGHT
     Route: 048
  8. TEGRETOL [Concomitant]
     Indication: NERVE INJURY
     Dosage: 1 AT NIGHT
     Route: 048
  9. FIORICET [Concomitant]
     Indication: MIGRAINE
     Dosage: 1 AT NIGHT
     Route: 048

REACTIONS (5)
  - HYPERHIDROSIS [None]
  - INADEQUATE ANALGESIA [None]
  - NAUSEA [None]
  - OVERDOSE [None]
  - WRONG TECHNIQUE IN DRUG USAGE PROCESS [None]
